FAERS Safety Report 16814796 (Version 1)
Quarter: 2019Q3

REPORT INFORMATION
  Report Type: Spontaneous
  Country: US (occurrence: US)
  Receive Date: 20190917
  Receipt Date: 20190917
  Transmission Date: 20191005
  Serious: No
  Sender: FDA-Public Use
  Company Number: US-ALLERGAN-1850759US

PATIENT
  Sex: Male
  Weight: 70.3 kg

DRUGS (2)
  1. ANTACIDS [Concomitant]
     Active Substance: UNSPECIFIED INGREDIENT
     Indication: GASTROOESOPHAGEAL REFLUX DISEASE
  2. LINZESS [Suspect]
     Active Substance: LINACLOTIDE
     Indication: INTESTINAL OBSTRUCTION
     Dosage: ACTUAL: IN THE MORNING BEFORE FOOD
     Route: 048
     Dates: start: 2018

REACTIONS (4)
  - Diarrhoea [Unknown]
  - Gastrointestinal sounds abnormal [Unknown]
  - Anal incontinence [Unknown]
  - Off label use [Unknown]

NARRATIVE: CASE EVENT DATE: 2018
